FAERS Safety Report 7814547-9 (Version None)
Quarter: 2011Q4

REPORT INFORMATION
  Report Type: 
  Country: None (occurrence: None)
  Receive Date: 20111014
  Receipt Date: 20111006
  Transmission Date: 20120403
  Serious: Yes (Life-Threatening, Hospitalization)
  Sender: FDA-Public Use
  Company Number: FR-MILLENNIUM PHARMACEUTICALS, INC.-2011-04197

PATIENT

DRUGS (14)
  1. POLYETHYLENE GLYCOL [Concomitant]
     Indication: DYSLIPIDAEMIA
  2. VELCADE [Suspect]
     Indication: MULTIPLE MYELOMA
     Dosage: 2.3 MG, UNK
     Route: 042
     Dates: start: 20110816, end: 20110826
  3. NEXIUM [Concomitant]
  4. VELCADE [Suspect]
     Dosage: 2.3 UNK, UNK
     Route: 042
     Dates: start: 20110909
  5. PREVISCAN                          /00261401/ [Concomitant]
  6. TRAMADOL HCL [Suspect]
     Indication: PAIN
     Dosage: 20 MG, UNK
     Route: 048
     Dates: start: 20110811, end: 20110831
  7. CORDARONE [Concomitant]
     Indication: ATRIAL FIBRILLATION
  8. ESCITALOPRAM OXALATE [Concomitant]
     Indication: DEPRESSION
  9. LORAZEPAM [Suspect]
     Indication: INSOMNIA
     Dosage: 2.5 MG, UNK
     Route: 048
     Dates: start: 20110809, end: 20110831
  10. INDAPAMIDE [Concomitant]
  11. DEXAMETHASONE [Suspect]
     Indication: MULTIPLE MYELOMA
     Dosage: 20 MG, UNK
     Route: 048
     Dates: start: 20110812, end: 20110827
  12. TEMERIT                            /01339101/ [Concomitant]
     Indication: ATRIAL FIBRILLATION
  13. CRESTOR [Concomitant]
     Indication: ATRIAL FIBRILLATION
  14. ACETAMINOPHEN [Concomitant]
     Indication: PAIN

REACTIONS (7)
  - SEPTIC SHOCK [None]
  - PSYCHOMOTOR RETARDATION [None]
  - CHEST PAIN [None]
  - CONFUSIONAL STATE [None]
  - DISTURBANCE IN ATTENTION [None]
  - ABSCESS [None]
  - GENERAL PHYSICAL HEALTH DETERIORATION [None]
